FAERS Safety Report 13709189 (Version 1)
Quarter: 2017Q2

REPORT INFORMATION
  Report Type: Spontaneous
  Country: US (occurrence: US)
  Receive Date: 20170630
  Receipt Date: 20170630
  Transmission Date: 20170830
  Serious: Yes (Death, Life-Threatening, Hospitalization)
  Sender: FDA-Public Use
  Company Number: None

PATIENT
  Age: 94 Year
  Sex: Female
  Weight: 59.85 kg

DRUGS (6)
  1. HALDOL [Suspect]
     Active Substance: HALOPERIDOL
     Indication: PRODUCT USED FOR UNKNOWN INDICATION
     Route: 058
     Dates: start: 20170606, end: 20170606
  2. KEFLEX [Concomitant]
     Active Substance: CEPHALEXIN
  3. TRAMADOL. [Concomitant]
     Active Substance: TRAMADOL
  4. HYDROCODONE [Concomitant]
     Active Substance: HYDROCODONE
  5. CLARITIN [Concomitant]
     Active Substance: LORATADINE
  6. LEVOHYROXINE [Concomitant]

REACTIONS (7)
  - Renal impairment [None]
  - Coma [None]
  - Cardiac disorder [None]
  - Muscle twitching [None]
  - Quality of life decreased [None]
  - Terminal state [None]
  - Screaming [None]

NARRATIVE: CASE EVENT DATE: 20170606
